FAERS Safety Report 25203256 (Version 1)
Quarter: 2025Q2

REPORT INFORMATION
  Report Type: Spontaneous
  Country: US (occurrence: None)
  Receive Date: 20250415
  Receipt Date: 20250415
  Transmission Date: 20250717
  Serious: Yes (Disabling)
  Sender: FDA-CTU
  Company Number: None

PATIENT
  Age: 61 Year
  Sex: Female
  Weight: 76.5 kg

DRUGS (1)
  1. TIRZEPATIDE [Suspect]
     Active Substance: TIRZEPATIDE
     Indication: Weight decreased
     Dosage: OTHER FREQUENCY : 1X A WEEK;?OTHER ROUTE : INTO SOFT TISSUE;?
     Route: 050
     Dates: start: 20250327, end: 20250411

REACTIONS (7)
  - Gastrointestinal pain [None]
  - Abdominal distension [None]
  - Nausea [None]
  - Fatigue [None]
  - Pain [None]
  - Lethargy [None]
  - Headache [None]

NARRATIVE: CASE EVENT DATE: 20250413
